FAERS Safety Report 25235287 (Version 1)
Quarter: 2025Q2

REPORT INFORMATION
  Report Type: Spontaneous
  Country: US (occurrence: US)
  Receive Date: 20250424
  Receipt Date: 20250424
  Transmission Date: 20250717
  Serious: Yes (Hospitalization)
  Sender: DOMPE FARMACEUTICI
  Company Number: US-FARMAPROD-202504-1253

PATIENT
  Sex: Male

DRUGS (19)
  1. OXERVATE [Suspect]
     Active Substance: CENEGERMIN-BKBJ
     Indication: Neurotrophic keratopathy
     Route: 047
     Dates: start: 20250325
  2. REFRESH LACRI-LUBE [Concomitant]
     Active Substance: MINERAL OIL\PETROLATUM
  3. LORAZEPAM [Concomitant]
     Active Substance: LORAZEPAM
  4. FUROSEMIDE [Concomitant]
     Active Substance: FUROSEMIDE
  5. CARBIDOPA [Concomitant]
     Active Substance: CARBIDOPA
  6. ATORVASTATIN CALCIUM [Concomitant]
     Active Substance: ATORVASTATIN CALCIUM
  7. XARELTO [Concomitant]
     Active Substance: RIVAROXABAN
  8. FINASTERIDE [Concomitant]
     Active Substance: FINASTERIDE
  9. LEVOTHYROXINE SODIUM [Concomitant]
     Active Substance: LEVOTHYROXINE SODIUM
  10. PREGABALIN [Concomitant]
     Active Substance: PREGABALIN
  11. SERTRALINE HYDROCHLORIDE [Concomitant]
     Active Substance: SERTRALINE HYDROCHLORIDE
  12. ACETAMINOPHEN\HYDROCODONE [Concomitant]
     Active Substance: ACETAMINOPHEN\HYDROCODONE
  13. VITAMIN B12 [Concomitant]
     Active Substance: CYANOCOBALAMIN
  14. VITAMIN E [Concomitant]
     Active Substance: .ALPHA.-TOCOPHEROL
  15. IRON [Concomitant]
     Active Substance: IRON
  16. REFRESH TEARS [Concomitant]
     Active Substance: CARBOXYMETHYLCELLULOSE SODIUM
  17. JARDIANCE [Concomitant]
     Active Substance: EMPAGLIFLOZIN
  18. CARVEDILOL [Concomitant]
     Active Substance: CARVEDILOL
  19. VITAMIN D3 [Concomitant]
     Active Substance: CHOLECALCIFEROL

REACTIONS (1)
  - Fluid retention [Recovered/Resolved]
